FAERS Safety Report 7049396-5 (Version None)
Quarter: 2010Q4

REPORT INFORMATION
  Report Type: 
  Country: None (occurrence: None)
  Receive Date: 20101018
  Receipt Date: 20101005
  Transmission Date: 20110411
  Serious: Yes (Death)
  Sender: FDA-Public Use
  Company Number: GB-ACTELION-A-CH2010-40118

PATIENT
  Sex: Female
  Weight: 63 kg

DRUGS (2)
  1. BOSENTAN TABLET 62.5 MG DUO EU [Suspect]
     Indication: SKIN ULCER
     Dosage: 125 MG, BID
     Route: 048
     Dates: start: 20091120, end: 20100921
  2. BOSENTAN TABLET 62.5 MG DUO EU [Suspect]
     Dosage: 62.5 MG, BID
     Route: 048
     Dates: start: 20091023, end: 20091119

REACTIONS (1)
  - MYOCARDIAL INFARCTION [None]
